FAERS Safety Report 12286952 (Version 1)
Quarter: 2016Q2

REPORT INFORMATION
  Report Type: Spontaneous
  Country: US (occurrence: US)
  Receive Date: 20160420
  Receipt Date: 20160420
  Transmission Date: 20160815
  Serious: Yes (Hospitalization)
  Sender: FDA-Public Use
  Company Number: US-B.I. PHARMACEUTICALS,INC./RIDGEFIELD-2016-BI-24704BP

PATIENT
  Sex: Female

DRUGS (2)
  1. OXYCODONE [Concomitant]
     Active Substance: OXYCODONE
     Indication: PRODUCT USED FOR UNKNOWN INDICATION
     Dosage: 30 MG
     Route: 065
  2. CATAPRES-TTS [Suspect]
     Active Substance: CLONIDINE
     Indication: BLOOD PRESSURE MEASUREMENT
     Route: 065

REACTIONS (9)
  - Lymph node abscess [Unknown]
  - Arrhythmia [Unknown]
  - Hypoxia [Unknown]
  - Coma [Unknown]
  - Infection [Unknown]
  - Bronchitis [Unknown]
  - Abscess neck [Unknown]
  - Intestinal stenosis [Unknown]
  - Memory impairment [Unknown]
